FAERS Safety Report 7936229-5 (Version None)
Quarter: 2011Q4

REPORT INFORMATION
  Report Type: 
  Country: None (occurrence: None)
  Receive Date: 20111123
  Receipt Date: 20111118
  Transmission Date: 20120403
  Serious: Yes (Hospitalization)
  Sender: FDA-Public Use
  Company Number: ES-PFIZER INC-2011268675

PATIENT
  Age: 43 Year
  Sex: Female

DRUGS (6)
  1. PIPERACILLIN AND TAZOBACTAM [Suspect]
     Indication: PNEUMONIA
     Dosage: 16 G/2 G DAILY
     Route: 042
     Dates: start: 20110409, end: 20110411
  2. FUROSEMIDE [Suspect]
     Indication: FLUID OVERLOAD
     Dosage: UNK
     Route: 042
     Dates: start: 20110321, end: 20110413
  3. DAUNORUBICIN HCL [Suspect]
     Indication: NON-HODGKIN'S LYMPHOMA
     Dosage: UNK
     Route: 042
     Dates: start: 20110406, end: 20110408
  4. VANCOMYCIN HCL [Suspect]
     Indication: PNEUMONIA
     Dosage: UNK
     Route: 042
     Dates: start: 20110409, end: 20110413
  5. CYTARABINE [Suspect]
     Indication: NON-HODGKIN'S LYMPHOMA
     Dosage: UNK
     Route: 042
     Dates: start: 20110401, end: 20110405
  6. FLUCONAZOLE [Suspect]
     Indication: PROPHYLAXIS
     Dosage: UNK
     Route: 042
     Dates: start: 20110406, end: 20110411

REACTIONS (5)
  - RENAL FAILURE ACUTE [None]
  - DELIRIUM [None]
  - HYPOMAGNESAEMIA [None]
  - CONFUSIONAL STATE [None]
  - HYPOKALAEMIA [None]
